FAERS Safety Report 16758691 (Version 1)
Quarter: 2019Q3

REPORT INFORMATION
  Report Type: Spontaneous
  Country: US (occurrence: US)
  Receive Date: 20190830
  Receipt Date: 20190830
  Transmission Date: 20191005
  Serious: No
  Sender: FDA-Public Use
  Company Number: US-APOTEX-2019AP019656

PATIENT
  Age: 71 Year
  Sex: Female

DRUGS (2)
  1. ANASTROZOLE. [Suspect]
     Active Substance: ANASTROZOLE
     Indication: BREAST CANCER
     Dosage: 1 DF, QD
     Route: 048
     Dates: start: 2006
  2. ARIMIDEX [Concomitant]
     Active Substance: ANASTROZOLE
     Indication: BREAST CANCER
     Dosage: 1 DF, QD
     Route: 048

REACTIONS (5)
  - Gingival bleeding [Recovered/Resolved]
  - Bone pain [Recovered/Resolved]
  - Nausea [Recovered/Resolved]
  - Breast pain [Recovered/Resolved]
  - Epistaxis [Recovered/Resolved]
